FAERS Safety Report 25034400 (Version 1)
Quarter: 2025Q1

REPORT INFORMATION
  Report Type: Spontaneous
  Country: US (occurrence: US)
  Receive Date: 20250304
  Receipt Date: 20250304
  Transmission Date: 20250409
  Serious: No
  Sender: ROCHE
  Company Number: US-ROCHE-10000219385

PATIENT
  Sex: Male

DRUGS (1)
  1. ACTEMRA ACTPEN [Suspect]
     Active Substance: TOCILIZUMAB
     Indication: Morphoea
     Dosage: STRENGTH:162MG/0.9ML
     Route: 058
     Dates: start: 202410

REACTIONS (2)
  - Off label use [Unknown]
  - No adverse event [Unknown]
